FAERS Safety Report 22647290 (Version 1)
Quarter: 2023Q2

REPORT INFORMATION
  Report Type: Spontaneous
  Country: US (occurrence: US)
  Receive Date: 20230627
  Receipt Date: 20230627
  Transmission Date: 20230722
  Serious: No
  Sender: FDA-Public Use
  Company Number: US-PRINSTON PHARMACEUTICAL INC.-2023PRN00154

PATIENT
  Age: 82 Year
  Sex: Female

DRUGS (4)
  1. DULOXETINE [Suspect]
     Active Substance: DULOXETINE
     Indication: Arthralgia
     Dosage: 20 MG, 1X/DAY
     Route: 048
     Dates: start: 2023, end: 202303
  2. DULOXETINE [Suspect]
     Active Substance: DULOXETINE
     Dosage: 40 MG, 1X/DAY
     Route: 048
     Dates: start: 202303, end: 202303
  3. DULOXETINE [Suspect]
     Active Substance: DULOXETINE
     Dosage: 60 MG, 1X/DAY
     Route: 048
     Dates: start: 202303
  4. LIPTOR [ATORVASTATIN] [Concomitant]

REACTIONS (1)
  - Drug ineffective [Recovered/Resolved]

NARRATIVE: CASE EVENT DATE: 20230301
